FAERS Safety Report 4354153-4 (Version None)
Quarter: 2004Q2

REPORT INFORMATION
  Report Type: 
  Country: None (occurrence: None)
  Receive Date: 20040503
  Receipt Date: 20040419
  Transmission Date: 20050107
  Serious: Yes (Hospitalization)
  Sender: FDA-Public Use
  Company Number: 2004-DE-02202DE

PATIENT
  Age: 42 Year
  Sex: Male

DRUGS (5)
  1. CATAPRESAN DEPOT PERLONGETTEN (CLONIDINE) (KAP) [Suspect]
     Dosage: 12.5 MG (0.25 MG, 1 X 50 CAPSULES) PO; ONCE
     Route: 048
  2. XANEF 10 (ENALAPRIL MALEATE) (TA) [Suspect]
     Dosage: 200 MG (10, 1 C 20 TABLETS) PO; ONCE
     Route: 048
  3. DIBLOCIN 4 (DOXAZOSIN MESILATE) (TA) [Suspect]
     Dosage: 224 MG (4 MG, 1X56 TABLETS) PO;  ONCE
     Route: 048
  4. NEPRESOL (DIHYDRALAZINE MESILATE) (TA) [Suspect]
     Dosage: 1250 MG (1X25 TABLETS) PO; ONCE
     Route: 048
  5. ALCOHOL (ETHANOL) (NR) [Suspect]

REACTIONS (5)
  - AGITATION [None]
  - FATIGUE [None]
  - MULTIPLE DRUG OVERDOSE INTENTIONAL [None]
  - RENAL FAILURE [None]
  - SUICIDE ATTEMPT [None]
